FAERS Safety Report 5662393-7 (Version None)
Quarter: 2008Q1

REPORT INFORMATION
  Report Type: 
  Country: None (occurrence: None)
  Receive Date: 20080313
  Receipt Date: 20080310
  Transmission Date: 20080703
  Serious: Yes (Hospitalization)
  Sender: FDA-Public Use
  Company Number: JP-SP-2008-00487

PATIENT
  Age: 77 Year
  Sex: Male

DRUGS (3)
  1. IMMUCYST [Suspect]
     Indication: BLADDER CANCER
     Route: 043
     Dates: start: 20080110, end: 20080207
  2. IMMUCYST [Suspect]
     Route: 043
     Dates: start: 20080110, end: 20080207
  3. IMMUCYST [Suspect]
     Route: 043
     Dates: start: 20080110, end: 20080207

REACTIONS (4)
  - ANAEMIA [None]
  - DYSURIA [None]
  - HAEMATURIA [None]
  - PYREXIA [None]
